FAERS Safety Report 12961428 (Version 1)
Quarter: 2016Q4

REPORT INFORMATION
  Report Type: Spontaneous
  Country: US (occurrence: US)
  Receive Date: 20161121
  Receipt Date: 20161121
  Transmission Date: 20170207
  Serious: Yes (Hospitalization)
  Sender: FDA-Public Use
  Company Number: US-UNITED THERAPEUTICS-UNT-2016-017397

PATIENT
  Sex: Female

DRUGS (1)
  1. REMODULIN [Suspect]
     Active Substance: TREPROSTINIL
     Indication: PULMONARY ARTERIAL HYPERTENSION
     Dosage: 0.0658 ?G/KG, CONTINUING
     Route: 041
     Dates: start: 20161101

REACTIONS (5)
  - Pneumonia [Unknown]
  - Headache [Unknown]
  - Device use error [Unknown]
  - Injection site infection [Unknown]
  - Flushing [Unknown]

NARRATIVE: CASE EVENT DATE: 201611
